FAERS Safety Report 17522010 (Version 2)
Quarter: 2020Q2

REPORT INFORMATION
  Report Type: Spontaneous
  Country: US (occurrence: US)
  Receive Date: 20200310
  Receipt Date: 20200429
  Transmission Date: 20200713
  Serious: No
  Sender: FDA-Public Use
  Company Number: US-FARMAPROD-201912-2061

PATIENT
  Age: 70 Year
  Sex: Female

DRUGS (4)
  1. ARTIFICIAL TEARS [Concomitant]
     Active Substance: GLYCERIN\HYPROMELLOSES\POLYETHYLENE GLYCOL 400
     Indication: NEUROTROPHIC KERATOPATHY
     Dates: start: 20191206
  2. OXERVATE [Suspect]
     Active Substance: CENEGERMIN-BKBJ
     Indication: NEUROTROPHIC KERATOPATHY
     Route: 047
     Dates: start: 20191108, end: 20191230
  3. ADVIL [Concomitant]
     Active Substance: IBUPROFEN
     Indication: EYE PAIN
     Route: 048
     Dates: start: 20191206
  4. OFLOXACIN. [Concomitant]
     Active Substance: OFLOXACIN
     Indication: NEUROTROPHIC KERATOPATHY
     Dates: start: 20190926, end: 20191206

REACTIONS (4)
  - Eye pain [Recovering/Resolving]
  - Rhinorrhoea [Unknown]
  - Condition aggravated [Not Recovered/Not Resolved]
  - Periorbital pain [Unknown]

NARRATIVE: CASE EVENT DATE: 20191206
